FAERS Safety Report 7280752-6 (Version None)
Quarter: 2011Q1

REPORT INFORMATION
  Report Type: 
  Country: None (occurrence: None)
  Receive Date: 20110208
  Receipt Date: 20110202
  Transmission Date: 20110831
  Serious: Yes (Death)
  Sender: FDA-Public Use
  Company Number: MX-SHIRE-SPV1-2011-00180

PATIENT
  Sex: Female

DRUGS (1)
  1. VPRIV [Suspect]
     Indication: GAUCHER'S DISEASE
     Dosage: UNK, UNKNOWN
     Route: 041

REACTIONS (2)
  - CONDITION AGGRAVATED [None]
  - OESOPHAGEAL VARICES HAEMORRHAGE [None]
